FAERS Safety Report 6595225-3 (Version None)
Quarter: 2010Q1

REPORT INFORMATION
  Report Type: 
  Country: None (occurrence: None)
  Receive Date: 20100205
  Receipt Date: 20100127
  Transmission Date: 20100710
  Serious: Yes (Death)
  Sender: FDA-Public Use
  Company Number: 20108082

PATIENT
  Age: 49 Year
  Sex: Male

DRUGS (5)
  1. LIORESAL [Suspect]
     Indication: MUSCLE SPASTICITY
     Dosage: MCG, DAILY, INTRATHECAL
     Route: 037
  2. HYDROMORPHONE HYDROCHLORIDE [Concomitant]
  3. DROPERIDOL [Concomitant]
  4. BUPIVACAINE HCL [Concomitant]
  5. CLONIDINE [Concomitant]

REACTIONS (1)
  - TERMINAL STATE [None]
